FAERS Safety Report 4464777-1 (Version None)
Quarter: 2004Q4

REPORT INFORMATION
  Report Type: 
  Country: None (occurrence: None)
  Receive Date: 20041004
  Receipt Date: 20040817
  Transmission Date: 20050328
  Serious: No
  Sender: FDA-Public Use
  Company Number: MCN380059

PATIENT
  Age: 78 Year
  Sex: Female

DRUGS (11)
  1. COREG [Suspect]
     Dosage: 3.125MG TWICE PER DAY
     Route: 048
     Dates: start: 20040329, end: 20040817
  2. NEXIUM [Concomitant]
  3. ASPIRIN [Concomitant]
  4. CELEBREX [Concomitant]
  5. POTASSIUM [Concomitant]
  6. ZOCOR [Concomitant]
  7. LEXAPRO [Concomitant]
  8. LANOXIN [Concomitant]
  9. LASIX [Concomitant]
  10. SPIRONOLACTONE [Concomitant]
  11. CYCLOBENZAPRINE HCL [Concomitant]

REACTIONS (2)
  - OEDEMA PERIPHERAL [None]
  - RASH [None]
